FAERS Safety Report 18055724 (Version 2)
Quarter: 2020Q3

REPORT INFORMATION
  Report Type: Spontaneous
  Country: FR (occurrence: FR)
  Receive Date: 20200722
  Receipt Date: 20200810
  Transmission Date: 20201103
  Serious: Yes (Death, Hospitalization, Other)
  Sender: FDA-Public Use
  Company Number: FR-ALLERGAN-2026775US

PATIENT
  Sex: Male

DRUGS (2)
  1. LEVOFLOXACINE KABI [Suspect]
     Active Substance: LEVOFLOXACIN
     Indication: INFECTION
     Dosage: 500 MG 2/D ? 250 MG 1/D
     Route: 042
     Dates: start: 20200412, end: 20200604
  2. CEFTAZIDIME;AVIBACTAM ? BP [Suspect]
     Active Substance: AVIBACTAM SODIUM\CEFTAZIDIME
     Indication: SEPSIS
     Dosage: 6 G
     Route: 042
     Dates: start: 20200418, end: 20200605

REACTIONS (2)
  - Haemolytic anaemia [Fatal]
  - Eosinophilia [Fatal]

NARRATIVE: CASE EVENT DATE: 202004
